FAERS Safety Report 18053009 (Version 1)
Quarter: 2020Q3

REPORT INFORMATION
  Report Type: Other
  Country: IT (occurrence: IT)
  Receive Date: 20200721
  Receipt Date: 20200721
  Transmission Date: 20201103
  Serious: Yes (Hospitalization)
  Sender: FDA-Public Use
  Company Number: IT-ROCHE-2644719

PATIENT
  Age: 72 Year
  Sex: Male

DRUGS (10)
  1. TOCILIZUMAB. [Suspect]
     Active Substance: TOCILIZUMAB
     Indication: COVID-19
     Route: 058
     Dates: start: 20200328
  2. TOCILIZUMAB. [Suspect]
     Active Substance: TOCILIZUMAB
     Indication: ACUTE RESPIRATORY FAILURE
  3. TOCILIZUMAB. [Suspect]
     Active Substance: TOCILIZUMAB
     Indication: ACUTE RESPIRATORY DISTRESS SYNDROME
  4. DARUNAVIR [Concomitant]
     Active Substance: DARUNAVIR
     Indication: COVID-19
  5. VITAMIN C [Concomitant]
     Active Substance: ASCORBIC ACID
     Indication: COVID-19
  6. CORTISONE [Concomitant]
     Active Substance: CORTISONE
     Indication: RESPIRATORY DISORDER PROPHYLAXIS
  7. CHLOROQUINE. [Concomitant]
     Active Substance: CHLOROQUINE
     Indication: COVID-19
  8. N?ACETYLCYSTEINE [Concomitant]
     Active Substance: ACETYLCYSTEINE
     Indication: COVID-19
  9. LOW MOLECULAR WEIGHT HEPARIN [Concomitant]
     Active Substance: UNSPECIFIED INGREDIENT
     Indication: PROPHYLAXIS
  10. TOCILIZUMAB. [Suspect]
     Active Substance: TOCILIZUMAB
     Indication: CYTOKINE STORM

REACTIONS (5)
  - Respiratory tract infection fungal [Unknown]
  - Enterococcal bacteraemia [Unknown]
  - Klebsiella bacteraemia [Unknown]
  - Intentional product use issue [Unknown]
  - Off label use [Unknown]
